FAERS Safety Report 11147496 (Version 1)
Quarter: 2015Q2

REPORT INFORMATION
  Report Type: Report from Study
  Country: BR (occurrence: BR)
  Receive Date: 20150529
  Receipt Date: 20150529
  Transmission Date: 20150821
  Serious: Yes (Other)
  Sender: FDA-Public Use
  Company Number: BR-ROCHE-1479924

PATIENT
  Age: 55 Year
  Sex: Female
  Weight: 68 kg

DRUGS (11)
  1. GINKGO BILOBA [Concomitant]
     Active Substance: GINKGO
  2. MABTHERA [Suspect]
     Active Substance: RITUXIMAB
     Route: 042
     Dates: start: 201411
  3. MABTHERA [Suspect]
     Active Substance: RITUXIMAB
     Indication: RHEUMATOID ARTHRITIS
     Route: 042
     Dates: start: 20141013
  4. MABTHERA [Suspect]
     Active Substance: RITUXIMAB
     Route: 042
     Dates: start: 201505
  5. ROSUVASTATIN [Concomitant]
     Active Substance: ROSUVASTATIN
  6. VITAMIN C [Concomitant]
     Active Substance: ASCORBIC ACID
  7. TRENTAL [Concomitant]
     Active Substance: PENTOXIFYLLINE
  8. NIMODIPINE. [Concomitant]
     Active Substance: NIMODIPINE
  9. VITAMIN E [Concomitant]
     Active Substance: .ALPHA.-TOCOPHEROL
  10. MAREVAN [Concomitant]
     Active Substance: WARFARIN SODIUM
  11. VENLAFAXINE [Concomitant]
     Active Substance: VENLAFAXINE HYDROCHLORIDE

REACTIONS (14)
  - Asthenia [Recovering/Resolving]
  - Chills [Recovering/Resolving]
  - Nausea [Recovered/Resolved]
  - Bone pain [Recovered/Resolved]
  - Weight decreased [Not Recovered/Not Resolved]
  - Cold sweat [Recovered/Resolved]
  - Abasia [Recovering/Resolving]
  - Arrhythmia [Recovered/Resolved]
  - Malaise [Recovering/Resolving]
  - Rhinalgia [Recovering/Resolving]
  - Abdominal pain [Recovering/Resolving]
  - Erythema [Recovered/Resolved]
  - Eating disorder [Recovering/Resolving]
  - Musculoskeletal chest pain [Recovering/Resolving]

NARRATIVE: CASE EVENT DATE: 20141013
